FAERS Safety Report 5903035-2 (Version None)
Quarter: 2008Q3

REPORT INFORMATION
  Report Type: 
  Country: None (occurrence: None)
  Receive Date: 20080930
  Receipt Date: 20080922
  Transmission Date: 20090109
  Serious: Yes (Hospitalization, Other)
  Sender: FDA-Public Use
  Company Number: FR-JNJFOC-20080606561

PATIENT
  Sex: Female

DRUGS (7)
  1. RISPERDAL CONSTA [Suspect]
     Indication: DRUG USE FOR UNKNOWN INDICATION
     Route: 030
  2. RISPERDAL [Suspect]
     Indication: DRUG USE FOR UNKNOWN INDICATION
     Route: 048
  3. TERCIAN [Concomitant]
     Indication: DRUG USE FOR UNKNOWN INDICATION
     Dosage: 12.5-0-25
     Route: 048
  4. ANTIPARKINSONIAN [Concomitant]
     Indication: DRUG USE FOR UNKNOWN INDICATION
  5. TEMESTA [Concomitant]
     Dosage: 1-0-2
     Route: 048
  6. EFFEXOR [Concomitant]
     Dosage: 2-0-1
     Route: 048
  7. NOCTAMIDE [Concomitant]
     Dosage: 0-0-1
     Route: 048

REACTIONS (7)
  - ABSCESS [None]
  - DEEP VEIN THROMBOSIS [None]
  - DRUG EXPOSURE DURING PREGNANCY [None]
  - DYSPLASIA [None]
  - PHLEBITIS [None]
  - PIGMENTATION DISORDER [None]
  - PULMONARY EMBOLISM [None]
